FAERS Safety Report 7769070-7 (Version None)
Quarter: 2011Q3

REPORT INFORMATION
  Report Type: 
  Country: None (occurrence: None)
  Receive Date: 20110922
  Receipt Date: 20100615
  Transmission Date: 20111222
  Serious: No
  Sender: FDA-Public Use
  Company Number: US-ASTRAZENECA-2010SE50696

PATIENT
  Age: 15961 Day
  Sex: Female
  Weight: 88 kg

DRUGS (5)
  1. SEROQUEL [Suspect]
     Route: 048
     Dates: start: 20030220
  2. CELEXA [Concomitant]
     Dates: start: 20030325
  3. BENZONATATE [Concomitant]
     Dates: start: 20030325
  4. TEQUIN [Concomitant]
     Dates: start: 20030325
  5. WELLBUTRIN [Concomitant]
     Dates: start: 20030325

REACTIONS (10)
  - ARTHRALGIA [None]
  - OESOPHAGITIS [None]
  - OSTEOARTHRITIS [None]
  - OESOPHAGEAL ULCER [None]
  - GASTROOESOPHAGEAL REFLUX DISEASE [None]
  - BACK PAIN [None]
  - PELVIC PAIN [None]
  - DIABETES MELLITUS [None]
  - TYPE 2 DIABETES MELLITUS [None]
  - ARTHRITIS [None]
